FAERS Safety Report 8234766-X (Version None)
Quarter: 2012Q1

REPORT INFORMATION
  Report Type: 
  Country: None (occurrence: None)
  Receive Date: 20120326
  Receipt Date: 20120316
  Transmission Date: 20120608
  Serious: Yes (Hospitalization)
  Sender: FDA-Public Use
  Company Number: FR-SANOFI-AVENTIS-2012SA008416

PATIENT
  Age: 74 Year
  Sex: Female
  Weight: 54 kg

DRUGS (6)
  1. STRUCTUM [Concomitant]
     Dates: start: 20000101
  2. LEVOTHYROXINE SODIUM [Concomitant]
     Dates: start: 20050101
  3. DOCETAXEL [Suspect]
     Route: 042
     Dates: start: 20120124
  4. TRASTUZUMAB [Suspect]
     Route: 042
     Dates: start: 20120124
  5. ACETAMINOPHEN [Concomitant]
     Dosage: DOSE: 1 IN 1 AS REQUIRED
     Dates: start: 20000101
  6. PERTUZUMAB [Suspect]
     Route: 042
     Dates: start: 20120124

REACTIONS (2)
  - CYTOLYTIC HEPATITIS [None]
  - NEUTROPENIA [None]
